FAERS Safety Report 16032963 (Version 1)
Quarter: 2019Q1

REPORT INFORMATION
  Report Type: Spontaneous
  Country: NL (occurrence: NL)
  Receive Date: 20190305
  Receipt Date: 20190305
  Transmission Date: 20190418
  Serious: Yes (Other)
  Sender: FDA-Public Use
  Company Number: NL-ACCORD-106922

PATIENT
  Age: 60 Year
  Sex: Female

DRUGS (5)
  1. FLIXONASE [Concomitant]
     Active Substance: FLUTICASONE PROPIONATE
  2. INJEXATE [Suspect]
     Active Substance: METHOTREXATE SODIUM
     Indication: RHEUMATIC DISORDER
     Dosage: STRENGTH: 12.5 MG
  3. FLIXOTIDE [Concomitant]
     Active Substance: FLUTICASONE PROPIONATE
     Dosage: STRENGTH: 250 ML
     Route: 055
  4. MONTELUKAST [Concomitant]
     Active Substance: MONTELUKAST SODIUM
     Route: 048
  5. FOLIMAX [Concomitant]
     Dosage: STRENGTH: 5 MG
     Route: 048

REACTIONS (2)
  - Needle issue [Unknown]
  - Injection site pain [Recovered/Resolved]

NARRATIVE: CASE EVENT DATE: 20190108
